FAERS Safety Report 23149107 (Version 1)
Quarter: 2023Q4

REPORT INFORMATION
  Report Type: Spontaneous
  Country: US (occurrence: US)
  Receive Date: 20231106
  Receipt Date: 20231106
  Transmission Date: 20240109
  Serious: No
  Sender: FDA-Public Use
  Company Number: US-PARATEK PHARMACEUTICALS, INC.-2023PTK00362

PATIENT
  Age: 62 Year
  Sex: Female
  Weight: 136.05 kg

DRUGS (4)
  1. NUZYRA [Suspect]
     Active Substance: OMADACYCLINE
     Indication: Skin infection
     Dosage: 450 MG, 1X/DAY
     Route: 048
     Dates: start: 202307, end: 202307
  2. NUZYRA [Suspect]
     Active Substance: OMADACYCLINE
     Indication: Localised infection
     Dosage: 300 MG, 1X/DAY
     Route: 048
     Dates: start: 202307, end: 202307
  3. PROZAC [Concomitant]
     Active Substance: FLUOXETINE HYDROCHLORIDE
  4. SPIRIVA [Concomitant]
     Active Substance: TIOTROPIUM BROMIDE MONOHYDRATE

REACTIONS (3)
  - Asthenia [Recovered/Resolved]
  - Nausea [Recovered/Resolved]
  - Off label use [Recovered/Resolved]

NARRATIVE: CASE EVENT DATE: 20230701
